FAERS Safety Report 4464581-4 (Version None)
Quarter: 2004Q3

REPORT INFORMATION
  Report Type: 
  Country: None (occurrence: None)
  Receive Date: 20040929
  Receipt Date: 20040913
  Transmission Date: 20050211
  Serious: Yes (Hospitalization)
  Sender: FDA-Public Use
  Company Number: B0345426A

PATIENT
  Age: 82 Year
  Sex: Female

DRUGS (1)
  1. LAMICTAL [Suspect]

REACTIONS (2)
  - IATROGENIC INJURY [None]
  - INAPPROPRIATE ANTIDIURETIC HORMONE SECRETION [None]
